FAERS Safety Report 8182009-8 (Version None)
Quarter: 2012Q1

REPORT INFORMATION
  Report Type: 
  Country: None (occurrence: None)
  Receive Date: 20120302
  Receipt Date: 20120221
  Transmission Date: 20120608
  Serious: Yes (Other)
  Sender: FDA-Public Use
  Company Number: PHHY2012JP017961

PATIENT

DRUGS (10)
  1. ROCURONIUM BROMIDE [Suspect]
     Route: 064
  2. FENTANYL [Suspect]
     Route: 064
  3. AOS [Suspect]
     Route: 064
  4. NICARDIPINE HYDROCHLORIDE [Suspect]
     Route: 064
  5. BETAMETHASONE [Suspect]
     Route: 064
  6. MIDAZOLAM [Concomitant]
  7. NITROUS OXIDE [Concomitant]
  8. NEUPOGEN [Suspect]
     Route: 064
  9. PROPOFOL [Suspect]
     Route: 064
  10. SUGAMMADEX [Suspect]
     Route: 064

REACTIONS (3)
  - LOW BIRTH WEIGHT BABY [None]
  - PREMATURE BABY [None]
  - FOETAL EXPOSURE DURING PREGNANCY [None]
